FAERS Safety Report 24097868 (Version 3)
Quarter: 2024Q4

REPORT INFORMATION
  Report Type: Spontaneous
  Country: US (occurrence: US)
  Receive Date: 20240716
  Receipt Date: 20241203
  Transmission Date: 20250115
  Serious: No
  Sender: ROCHE
  Company Number: US-ROCHE-10000026096

PATIENT
  Age: 48 Year
  Sex: Male
  Weight: 92.99 kg

DRUGS (1)
  1. HEMLIBRA [Suspect]
     Active Substance: EMICIZUMAB-KXWH
     Indication: Factor VIII deficiency
     Dosage: STRENGTH: 150 MG/ML
     Route: 058
     Dates: start: 201801

REACTIONS (3)
  - Haemorrhage [Recovered/Resolved]
  - Haemorrhage [Unknown]
  - Blood urine present [Recovered/Resolved]

NARRATIVE: CASE EVENT DATE: 20240701
